FAERS Safety Report 4479974-9 (Version None)
Quarter: 2004Q4

REPORT INFORMATION
  Report Type: 
  Country: None (occurrence: None)
  Receive Date: 20041018
  Receipt Date: 20041001
  Transmission Date: 20050328
  Serious: Yes (Life-Threatening, Other)
  Sender: FDA-Public Use
  Company Number: S04-UKI-03826-01

PATIENT
  Age: 27 Year
  Sex: Male

DRUGS (4)
  1. CITALOPRAM HYDROBROMIDE [Suspect]
     Indication: DEPRESSION
     Dosage: 5 MG QD PO
     Route: 048
     Dates: start: 20040701, end: 20040710
  2. CITALOPRAM HYDROBROMIDE [Suspect]
     Indication: DEPRESSION
     Dates: start: 20040713
  3. OLANZAPINE [Concomitant]
  4. VALPROATE SODIUM [Concomitant]

REACTIONS (3)
  - ANXIETY [None]
  - HALLUCINATION, AUDITORY [None]
  - SUICIDAL IDEATION [None]
